FAERS Safety Report 9934550 (Version 1)
Quarter: 2014Q1

REPORT INFORMATION
  Report Type: Spontaneous
  Country: IT (occurrence: IT)
  Receive Date: 20140228
  Receipt Date: 20140228
  Transmission Date: 20141002
  Serious: Yes (Other)
  Sender: FDA-Public Use
  Company Number: PHHY2014IT024428

PATIENT
  Sex: Male

DRUGS (1)
  1. ZOMETA [Suspect]
     Indication: PLASMA CELL MYELOMA
     Dosage: UNK UKN, UNK
     Route: 042
     Dates: start: 20050502, end: 20080902

REACTIONS (1)
  - Osteonecrosis of jaw [Recovering/Resolving]
